FAERS Safety Report 23049512 (Version 2)
Quarter: 2025Q2

REPORT INFORMATION
  Report Type: Report from Study
  Country: CA (occurrence: CA)
  Receive Date: 20231010
  Receipt Date: 20250506
  Transmission Date: 20250717
  Serious: Yes (Hospitalization, Other)
  Sender: ROCHE
  Company Number: CA-ROCHE-3408039

PATIENT
  Age: 51 Year
  Sex: Female

DRUGS (3)
  1. OCREVUS [Suspect]
     Active Substance: OCRELIZUMAB
     Indication: Relapsing-remitting multiple sclerosis
     Dosage: 300 MG AT DAY 0 AND 14, THEN 600 MG EVERY 6 MONTHS
     Route: 042
     Dates: start: 20220720
  2. DILANTIN [Concomitant]
     Active Substance: PHENYTOIN
  3. APIXABAN [Concomitant]
     Active Substance: APIXABAN

REACTIONS (5)
  - Cerebral venous sinus thrombosis [Recovered/Resolved]
  - Sigmoid sinus thrombosis [Recovered/Resolved]
  - Cervical polyp [Unknown]
  - Platelet count increased [Unknown]
  - Heavy menstrual bleeding [Unknown]

NARRATIVE: CASE EVENT DATE: 20230807
